FAERS Safety Report 19160083 (Version 2)
Quarter: 2021Q2

REPORT INFORMATION
  Report Type: Report from Study
  Country: US (occurrence: US)
  Receive Date: 20210420
  Receipt Date: 20210423
  Transmission Date: 20210717
  Serious: Yes (Other)
  Sender: FDA-Public Use
  Company Number: US-ALXN-A202104665

PATIENT
  Age: 87 Year
  Sex: Female

DRUGS (2)
  1. SOLIRIS [Suspect]
     Active Substance: ECULIZUMAB
     Indication: MYASTHENIA GRAVIS
     Route: 065
  2. MODERNA COVID?19 VACCINE [Concomitant]
     Active Substance: CX-024414
     Indication: COVID-19 IMMUNISATION
     Dosage: UNK
     Route: 065

REACTIONS (10)
  - Jaw disorder [Unknown]
  - Dehydration [Unknown]
  - Suspected COVID-19 [Unknown]
  - Pneumonia staphylococcal [Unknown]
  - Muscular weakness [Unknown]
  - Urinary tract infection [Unknown]
  - Back pain [Unknown]
  - Fatigue [Unknown]
  - Terminal state [Unknown]
  - General physical health deterioration [Unknown]

NARRATIVE: CASE EVENT DATE: 202101
